FAERS Safety Report 4721618-2 (Version None)
Quarter: 2005Q3

REPORT INFORMATION
  Report Type: 
  Country: None (occurrence: None)
  Receive Date: 20050721
  Receipt Date: 20050105
  Transmission Date: 20060218
  Serious: No
  Sender: FDA-Public Use
  Company Number: US-BRISTOL-MYERS SQUIBB COMPANY-12814273

PATIENT
  Age: 82 Year
  Sex: Female
  Weight: 82 kg

DRUGS (4)
  1. COUMADIN [Suspect]
     Indication: THROMBOSIS
     Dosage: START 15MG QD 3/04 OR 4/04;DOSES ADJUSTED; DOSE DOWN TO 12.5 QD, THEN 10MG QD, THEN ADJUSTED AGAIN.
     Route: 048
     Dates: start: 20040101
  2. ALBUTEROL [Concomitant]
  3. DYAZIDE [Concomitant]
  4. ZETIA [Concomitant]
     Dates: end: 20041101

REACTIONS (1)
  - INTERNATIONAL NORMALISED RATIO ABNORMAL [None]
